FAERS Safety Report 21565905 (Version 1)
Quarter: 2022Q4

REPORT INFORMATION
  Report Type: Spontaneous
  Country: US (occurrence: US)
  Receive Date: 20221108
  Receipt Date: 20221108
  Transmission Date: 20230113
  Serious: No
  Sender: FDA-Public Use
  Company Number: US-TEVA-2022-US-2819963

PATIENT
  Age: 69 Year
  Sex: Female

DRUGS (1)
  1. ALBUTEROL SULFATE [Suspect]
     Active Substance: ALBUTEROL SULFATE
     Indication: Wheezing
     Dosage: 90 MCG/DOSE   ,2 PUFFS INTO THE LUNGS BY MOUTH EVERY 4 HOURS AS NEEDED
     Route: 055
     Dates: start: 202209

REACTIONS (4)
  - Productive cough [Unknown]
  - Throat irritation [Recovered/Resolved]
  - Tongue discomfort [Recovered/Resolved]
  - Product use in unapproved indication [Unknown]

NARRATIVE: CASE EVENT DATE: 20220101
